FAERS Safety Report 14026489 (Version 6)
Quarter: 2018Q2

REPORT INFORMATION
  Report Type: Spontaneous
  Country: US (occurrence: US)
  Receive Date: 20170929
  Receipt Date: 20180620
  Transmission Date: 20180711
  Serious: Yes (Death, Hospitalization)
  Sender: FDA-Public Use
  Company Number: US-ACTELION-A-NJ2017-160215

PATIENT
  Age: 61 Year
  Sex: Female
  Weight: 50.79 kg

DRUGS (3)
  1. OPSUMIT [Suspect]
     Active Substance: MACITENTAN
     Indication: PULMONARY HYPERTENSION
     Dosage: 10 MG, QD
     Route: 048
  2. NIFEDIPINE. [Concomitant]
     Active Substance: NIFEDIPINE
  3. ADCIRCA [Concomitant]
     Active Substance: TADALAFIL

REACTIONS (14)
  - Mesenteric arterial occlusion [Unknown]
  - Fatigue [Unknown]
  - Death [Fatal]
  - Renal disorder [Unknown]
  - Arterial occlusive disease [Unknown]
  - Malaise [Unknown]
  - Oesophageal motility disorder [Unknown]
  - Cataract operation [Unknown]
  - Intestinal obstruction [Unknown]
  - Pneumoperitoneum [Unknown]
  - Appendicectomy [Unknown]
  - Mesenteric artery stent insertion [Unknown]
  - Crohn^s disease [Unknown]
  - Ascites [Unknown]

NARRATIVE: CASE EVENT DATE: 201709
